FAERS Safety Report 20071257 (Version 13)
Quarter: 2024Q3

REPORT INFORMATION
  Report Type: Report from Study
  Country: JP (occurrence: JP)
  Receive Date: 20211115
  Receipt Date: 20240712
  Transmission Date: 20241016
  Serious: Yes (Hospitalization, Other)
  Sender: NOVARTIS
  Company Number: JP-NOVARTISPH-NVSJ2021JP000838

PATIENT
  Age: 13 Month
  Sex: Male
  Weight: 8.2 kg

DRUGS (8)
  1. ZOLGENSMA [Suspect]
     Active Substance: ONASEMNOGENE ABEPARVOVEC-XIOI
     Indication: Spinal muscular atrophy
     Dosage: 46.8 ML (1.1 X E14VG/KG)
     Route: 041
     Dates: start: 20210108, end: 20210108
  2. PREDONINE [Concomitant]
     Active Substance: PREDNISOLONE
     Indication: Spinal muscular atrophy
     Dosage: 1 MG/KG, QD
     Route: 048
     Dates: start: 20210107, end: 20210112
  3. PREDONINE [Concomitant]
     Active Substance: PREDNISOLONE
     Dosage: 2 MG/KG, BID
     Route: 048
     Dates: start: 20210113, end: 20210114
  4. PREDONINE [Concomitant]
     Active Substance: PREDNISOLONE
     Dosage: 1 MG/KG, QD
     Route: 048
     Dates: start: 20210115, end: 20210204
  5. PREDONINE [Concomitant]
     Active Substance: PREDNISOLONE
     Dosage: 0.5 MG/KG, QD
     Route: 048
     Dates: start: 20210205, end: 20210218
  6. PREDONINE [Concomitant]
     Active Substance: PREDNISOLONE
     Dosage: 1 MG/KG, QD
     Route: 048
     Dates: start: 20210219, end: 20210318
  7. PREDONINE [Concomitant]
     Active Substance: PREDNISOLONE
     Dosage: 0.5 MG/KG, QD
     Route: 048
     Dates: start: 20210319, end: 20210401
  8. PREDONINE [Concomitant]
     Active Substance: PREDNISOLONE
     Dosage: 0.25 MG/KG, QD
     Route: 048
     Dates: start: 20210402, end: 20210416

REACTIONS (6)
  - Serum ferritin increased [Recovered/Resolved]
  - Pyrexia [Recovered/Resolved]
  - Alanine aminotransferase increased [Recovered/Resolved]
  - Aspartate aminotransferase increased [Recovered/Resolved]
  - Alanine aminotransferase increased [Recovered/Resolved]
  - Aspartate aminotransferase increased [Recovered/Resolved]

NARRATIVE: CASE EVENT DATE: 20210111
